FAERS Safety Report 24575330 (Version 2)
Quarter: 2024Q4

REPORT INFORMATION
  Report Type: Spontaneous
  Country: AU (occurrence: AU)
  Receive Date: 20241104
  Receipt Date: 20241105
  Transmission Date: 20250114
  Serious: Yes (Life-Threatening)
  Sender: PFIZER
  Company Number: AU-PFIZER INC-202400289598

PATIENT
  Age: 6 Decade
  Sex: Female

DRUGS (8)
  1. MORPHINE HYDROCHLORIDE [Suspect]
     Active Substance: MORPHINE HYDROCHLORIDE
     Indication: Mental disorder
     Dosage: UNK
  2. METRONIDAZOLE [Suspect]
     Active Substance: METRONIDAZOLE
     Indication: Antibiotic therapy
     Dosage: UNK
  3. OLANZAPINE [Suspect]
     Active Substance: OLANZAPINE
     Indication: Mental disorder
     Dosage: UNK
  4. OLANZAPINE [Suspect]
     Active Substance: OLANZAPINE
     Indication: Bipolar disorder
  5. OLANZAPINE [Suspect]
     Active Substance: OLANZAPINE
     Indication: Borderline personality disorder
  6. LITHIUM [Suspect]
     Active Substance: LITHIUM
     Indication: Mental disorder
     Dosage: UNK
  7. IRON [Suspect]
     Active Substance: IRON
     Indication: Mental disorder
     Dosage: UNK
     Route: 042
  8. AMITRIPTYLINE [Suspect]
     Active Substance: AMITRIPTYLINE
     Indication: Psychotic disorder
     Dosage: UNK

REACTIONS (1)
  - Hereditary angioedema [Unknown]
